FAERS Safety Report 7894206-7 (Version None)
Quarter: 2011Q4

REPORT INFORMATION
  Report Type: 
  Country: None (occurrence: None)
  Receive Date: 20111104
  Receipt Date: 20111027
  Transmission Date: 20120403
  Serious: Yes (Other)
  Sender: FDA-Public Use
  Company Number: IL-AMGEN-ISRSP2011057181

PATIENT
  Age: 64 Year
  Sex: Female
  Weight: 100 kg

DRUGS (1)
  1. NPLATE [Suspect]
     Indication: IDIOPATHIC THROMBOCYTOPENIC PURPURA
     Dosage: 1000 MUG, QWK
     Route: 058
     Dates: start: 20110412, end: 20111006

REACTIONS (1)
  - THERAPEUTIC RESPONSE DECREASED [None]
